FAERS Safety Report 20052113 (Version 2)
Quarter: 2024Q2

REPORT INFORMATION
  Report Type: Spontaneous
  Country: AU (occurrence: AU)
  Receive Date: 20211110
  Receipt Date: 20240424
  Transmission Date: 20240716
  Serious: Yes (Hospitalization, Other)
  Sender: FDA-Public Use
  Company Number: None

PATIENT
  Age: 66 Year
  Sex: Male

DRUGS (10)
  1. MYCOPHENOLATE MOFETIL [Suspect]
     Active Substance: MYCOPHENOLATE MOFETIL
     Indication: Immunosuppressant drug therapy
     Dosage: 500 MILLIGRAM, BID
     Route: 065
  2. MYCOPHENOLATE MOFETIL [Suspect]
     Active Substance: MYCOPHENOLATE MOFETIL
     Indication: Transplant rejection
     Dosage: UNK (REINTRODUCED)
     Route: 065
  3. TACROLIMUS [Suspect]
     Active Substance: TACROLIMUS
     Indication: Immunosuppressant drug therapy
     Dosage: 2 MILLIGRAM, BID
     Route: 065
  4. AZATHIOPRINE [Suspect]
     Active Substance: AZATHIOPRINE
     Indication: Product used for unknown indication
     Dosage: UNK
     Route: 065
  5. PREDNISOLONE [Suspect]
     Active Substance: PREDNISOLONE
     Indication: Immunosuppressant drug therapy
     Dosage: 10 MILLIGRAM, QD
     Route: 065
  6. POSACONAZOLE [Suspect]
     Active Substance: POSACONAZOLE
     Indication: Antifungal treatment
     Dosage: UNK, SLOW-RELEASE
     Route: 065
  7. POSACONAZOLE [Suspect]
     Active Substance: POSACONAZOLE
     Indication: Microsporum infection
  8. POSACONAZOLE [Suspect]
     Active Substance: POSACONAZOLE
     Indication: Mycetoma mycotic
  9. POSACONAZOLE [Suspect]
     Active Substance: POSACONAZOLE
     Indication: Systemic mycosis
  10. GLICLAZIDE [Concomitant]
     Active Substance: GLICLAZIDE
     Indication: Type 2 diabetes mellitus
     Dosage: 30 MILLIGRAM, QD
     Route: 065

REACTIONS (11)
  - Drug level above therapeutic [Unknown]
  - Drug interaction [Unknown]
  - Acute kidney injury [Unknown]
  - Neutropenia [Recovering/Resolving]
  - Mycetoma mycotic [Recovered/Resolved]
  - Microsporum infection [Recovered/Resolved]
  - Systemic mycosis [Recovered/Resolved]
  - Gastroenteritis norovirus [Recovered/Resolved]
  - Transplant rejection [Unknown]
  - Anaemia [Recovering/Resolving]
  - Dermatophytosis [Recovered/Resolved]
